FAERS Safety Report 8172085-0 (Version None)
Quarter: 2012Q1

REPORT INFORMATION
  Report Type: 
  Country: None (occurrence: None)
  Receive Date: 20120228
  Receipt Date: 20120221
  Transmission Date: 20120608
  Serious: Yes (Hospitalization, Other)
  Sender: FDA-Public Use
  Company Number: US-PFIZER INC-2012032145

PATIENT
  Sex: Female

DRUGS (5)
  1. DILANTIN [Suspect]
     Dosage: 200 MG, 2X/DAY
     Route: 048
     Dates: end: 20110307
  2. DILANTIN [Suspect]
     Indication: EPILEPSY
     Dosage: UNK
     Route: 048
     Dates: start: 20040101
  3. TRILEPTAL [Concomitant]
     Indication: EPILEPSY
     Dosage: UNK
     Route: 048
     Dates: start: 20060101
  4. TRILEPTAL [Concomitant]
     Dosage: 150 MG, 2X/DAY
  5. DILANTIN [Suspect]
     Dosage: 100 MG 2 TABLETS IN THE MORNING AND 3 TABLETS AT BED TIME
     Route: 048

REACTIONS (1)
  - STEVENS-JOHNSON SYNDROME [None]
